FAERS Safety Report 19057822 (Version 1)
Quarter: 2021Q1

REPORT INFORMATION
  Report Type: Spontaneous
  Country: US (occurrence: US)
  Receive Date: 20210324
  Receipt Date: 20210324
  Transmission Date: 20210420
  Serious: No
  Sender: FDA-Public Use
  Company Number: US-009507513-2103USA002783

PATIENT
  Sex: Female

DRUGS (1)
  1. INTRON A [Suspect]
     Active Substance: INTERFERON ALFA-2B
     Indication: CUTANEOUS T-CELL LYMPHOMA
     Dosage: 0.3 MILLILITER, TIW
     Route: 058
     Dates: start: 20200508

REACTIONS (3)
  - Accidental exposure to product [Unknown]
  - Rash papular [Not Recovered/Not Resolved]
  - Injury associated with device [Not Recovered/Not Resolved]
